FAERS Safety Report 5801999-9 (Version None)
Quarter: 2008Q3

REPORT INFORMATION
  Report Type: 
  Country: None (occurrence: None)
  Receive Date: 20080702
  Receipt Date: 20080624
  Transmission Date: 20090109
  Serious: Yes (Hospitalization)
  Sender: FDA-Public Use
  Company Number: PAR_02236_2008

PATIENT
  Age: 7 Year
  Sex: Male

DRUGS (3)
  1. IBUPROFEN [Suspect]
     Indication: JUVENILE ARTHRITIS
     Dosage: (8-10 MG/KG 3 TIMES PER DAY)
  2. ASPIRIN [Suspect]
     Indication: CORONARY ARTERY ANEURYSM
     Dosage: (5 MG/KG)
  3. SPECIFIC ANTIRHEUMATIC AGENTS [Concomitant]

REACTIONS (4)
  - ANEURYSM [None]
  - CORONARY ARTERY STENOSIS [None]
  - SINGLE PHOTON EMISSION COMPUTERISED TOMOGRAM ABNORMAL [None]
  - THROMBOSIS [None]
